FAERS Safety Report 6013786-X (Version None)
Quarter: 2008Q4

REPORT INFORMATION
  Report Type: 
  Country: None (occurrence: None)
  Receive Date: 20081219
  Receipt Date: 20081210
  Transmission Date: 20090506
  Serious: Yes (Other)
  Sender: FDA-Public Use
  Company Number: BR-PFIZER INC-2008154207

PATIENT

DRUGS (2)
  1. NORVASC [Suspect]
     Dosage: 5 MG, UNK
     Route: 048
     Dates: start: 20080101
  2. OLMESARTAN MEDOXOMIL [Suspect]
     Dosage: 40 MG, 1X/DAY
     Route: 048
     Dates: start: 20080910

REACTIONS (1)
  - HYPERTENSION [None]
